FAERS Safety Report 6453866-8 (Version None)
Quarter: 2009Q4

REPORT INFORMATION
  Report Type: 
  Country: None (occurrence: None)
  Receive Date: 20091124
  Receipt Date: 20091119
  Transmission Date: 20100525
  Serious: Yes (Hospitalization)
  Sender: FDA-Public Use
  Company Number: US-GILEAD-2009-0025608

PATIENT
  Sex: Female

DRUGS (22)
  1. LETAIRIS [Suspect]
     Indication: PULMONARY ARTERIAL HYPERTENSION
     Route: 048
     Dates: start: 20091101, end: 20091118
  2. LETAIRIS [Suspect]
     Route: 048
     Dates: start: 20090601
  3. COUMADIN [Concomitant]
  4. LASIX [Concomitant]
  5. DUONEB [Concomitant]
  6. COMBIVENT [Concomitant]
  7. PULMICORT [Concomitant]
  8. DIGOXIN [Concomitant]
  9. COREG [Concomitant]
  10. BETAPACE [Concomitant]
  11. PREDNISONE [Concomitant]
  12. ZOCOR [Concomitant]
  13. ACTOS [Concomitant]
  14. AMBIEN [Concomitant]
  15. ACCUPRIL [Concomitant]
  16. TRAMADOL HCL [Concomitant]
  17. EFFEXOR [Concomitant]
  18. AMITRIPTYLINE [Concomitant]
  19. XANAX [Concomitant]
  20. PRILOSEC [Concomitant]
  21. POTASSIUM CHLORIDE [Concomitant]
  22. NIFEREX [Concomitant]

REACTIONS (4)
  - ATRIAL FIBRILLATION [None]
  - DYSPNOEA [None]
  - HYPOTENSION [None]
  - PNEUMONIA [None]
